FAERS Safety Report 8737587 (Version 2)
Quarter: 2013Q4

REPORT INFORMATION
  Report Type: Spontaneous
  Country: US (occurrence: US)
  Receive Date: 20120822
  Receipt Date: 20131031
  Transmission Date: 20140711
  Serious: No
  Sender: FDA-Public Use
  Company Number: US-009507513-2012SP023725

PATIENT
  Age: 79 Year
  Sex: Female

DRUGS (5)
  1. DULERA [Suspect]
     Indication: ASTHMA
     Dosage: 2 DF, BID
     Dates: start: 201202
  2. WARFARIN [Concomitant]
     Indication: PRODUCT USED FOR UNKNOWN INDICATION
  3. QUININE [Concomitant]
     Indication: PRODUCT USED FOR UNKNOWN INDICATION
  4. VESICARE [Concomitant]
     Indication: PRODUCT USED FOR UNKNOWN INDICATION
     Dosage: UPDATE (12JUN2012): 5 MG INCREASED TO 10 MG IN MARCH 2012
  5. VAGIFEM [Concomitant]
     Indication: PRODUCT USED FOR UNKNOWN INDICATION
     Dosage: UPDATE (12JUN2012)
     Route: 067

REACTIONS (1)
  - Cough [Unknown]
